FAERS Safety Report 22702547 (Version 7)
Quarter: 2024Q4

REPORT INFORMATION
  Report Type: Spontaneous
  Country: US (occurrence: US)
  Receive Date: 20230713
  Receipt Date: 20241007
  Transmission Date: 20250114
  Serious: Yes (Other)
  Sender: PFIZER
  Company Number: US-PFIZER INC-PV202300121673

PATIENT
  Age: 68 Year
  Sex: Female
  Weight: 61.23 kg

DRUGS (5)
  1. PREMARIN [Suspect]
     Active Substance: ESTROGENS, CONJUGATED
     Indication: Menstruation irregular
     Dosage: UNK
     Dates: start: 1998
  2. PREMARIN [Suspect]
     Active Substance: ESTROGENS, CONJUGATED
     Dosage: 0.625MG TABLET, TAKE HALF TABLET ONCE A DAY BY MOUTH
     Route: 048
  3. MEDROXYPROGESTERONE ACETATE [Suspect]
     Active Substance: MEDROXYPROGESTERONE ACETATE
     Dosage: 2.5MG TABLET ONCE A DAY BY MOUTH
     Route: 048
  4. ESTRADIOL [Concomitant]
     Active Substance: ESTRADIOL
     Dosage: UNK
     Dates: start: 2024
  5. MEDROXYPROGESTERONE [Concomitant]
     Active Substance: MEDROXYPROGESTERONE
     Dosage: UNK

REACTIONS (12)
  - Suicidal ideation [Unknown]
  - Cerebrovascular accident [Unknown]
  - Off label use [Unknown]
  - Intentional product use issue [Unknown]
  - Product prescribing error [Unknown]
  - Irritability [Unknown]
  - Weight decreased [Unknown]
  - Confusional state [Unknown]
  - Memory impairment [Unknown]
  - Muscle spasms [Unknown]
  - Stress [Unknown]
  - Visual impairment [Unknown]

NARRATIVE: CASE EVENT DATE: 19980101
